FAERS Safety Report 17469369 (Version 1)
Quarter: 2020Q1

REPORT INFORMATION
  Report Type: Spontaneous
  Country: US (occurrence: US)
  Receive Date: 20200227
  Receipt Date: 20200227
  Transmission Date: 20200409
  Serious: Yes (Other)
  Sender: FDA-Public Use
  Company Number: US-ASTRAZENECA-2020SE28710

PATIENT
  Sex: Male
  Weight: 74.8 kg

DRUGS (58)
  1. PRILOSEC [Suspect]
     Active Substance: OMEPRAZOLE MAGNESIUM
     Indication: GASTROOESOPHAGEAL REFLUX DISEASE
     Dosage: GENERIC20.0MG UNKNOWN
     Route: 048
     Dates: start: 20140509
  2. PRILOSEC OTC [Suspect]
     Active Substance: OMEPRAZOLE MAGNESIUM
     Indication: GASTROOESOPHAGEAL REFLUX DISEASE
     Dosage: 20.0MG UNKNOWN
     Route: 048
     Dates: start: 2009, end: 2015
  3. PANTOPRAZOLE [Suspect]
     Active Substance: PANTOPRAZOLE
     Indication: GASTROOESOPHAGEAL REFLUX DISEASE
     Dosage: GENERIC40.0MG UNKNOWN
     Route: 048
     Dates: start: 20140821
  4. ZANTAC 150 (RANITIDINE HYDROCHLORIDE) [Concomitant]
     Active Substance: RANITIDINE HYDROCHLORIDE
     Route: 065
  5. CIPROFLOXACIN. [Concomitant]
     Active Substance: CIPROFLOXACIN
     Route: 065
  6. HEPARIN [Concomitant]
     Active Substance: HEPARIN SODIUM
     Route: 065
  7. ROCURONIUM [Concomitant]
     Active Substance: ROCURONIUM BROMIDE
     Route: 065
  8. BISACODYL. [Concomitant]
     Active Substance: BISACODYL
     Route: 065
  9. AMBIEN [Concomitant]
     Active Substance: ZOLPIDEM TARTRATE
     Route: 065
  10. PANTOPRAZOLE [Suspect]
     Active Substance: PANTOPRAZOLE
     Indication: GASTROOESOPHAGEAL REFLUX DISEASE
     Dosage: GENERIC40.0MG UNKNOWN
     Route: 042
     Dates: start: 20140813
  11. TAGAMET [Suspect]
     Active Substance: CIMETIDINE
     Route: 065
     Dates: start: 2000, end: 2019
  12. ONDANSETRON [Concomitant]
     Active Substance: ONDANSETRON
     Route: 065
  13. TRAZODONE [Concomitant]
     Active Substance: TRAZODONE HYDROCHLORIDE
     Route: 065
  14. ESCITALOPRAM OXALATE. [Concomitant]
     Active Substance: ESCITALOPRAM OXALATE
     Route: 065
  15. LUNESTA [Concomitant]
     Active Substance: ESZOPICLONE
     Route: 065
  16. ESCITALOPRAM OXALATE. [Concomitant]
     Active Substance: ESCITALOPRAM OXALATE
     Route: 065
  17. PRILOSEC OTC [Suspect]
     Active Substance: OMEPRAZOLE MAGNESIUM
     Indication: GASTROOESOPHAGEAL REFLUX DISEASE
     Dosage: 20.0MG UNKNOWN
     Route: 048
     Dates: start: 20110120
  18. LIDOCAINE. [Concomitant]
     Active Substance: LIDOCAINE
     Route: 065
  19. SIMVASTATIN. [Concomitant]
     Active Substance: SIMVASTATIN
     Route: 065
  20. MARCAINE [Concomitant]
     Active Substance: BUPIVACAINE HYDROCHLORIDE
     Route: 065
  21. ZOFRAN [Concomitant]
     Active Substance: ONDANSETRON HYDROCHLORIDE
     Route: 065
  22. TRIAMCINOLONE [Concomitant]
     Active Substance: TRIAMCINOLONE
     Route: 065
  23. PANTOPRAZOLE [Suspect]
     Active Substance: PANTOPRAZOLE
     Indication: GASTROOESOPHAGEAL REFLUX DISEASE
     Dosage: 40.0MG UNKNOWN
     Route: 065
     Dates: start: 2014, end: 2015
  24. ALKASELTZER [Concomitant]
     Route: 065
  25. ZETIA [Concomitant]
     Active Substance: EZETIMIBE
     Route: 065
  26. HYDROMORPHONE [Concomitant]
     Active Substance: HYDROMORPHONE
     Route: 065
  27. NEOSTIGMINE. [Concomitant]
     Active Substance: NEOSTIGMINE METHYLSULFATE
     Route: 065
  28. DOCUSATE [Concomitant]
     Active Substance: DOCUSATE
     Route: 065
  29. ISOMETHEPTENE [Concomitant]
     Active Substance: ISOMETHEPTENE
     Route: 065
  30. ERYTHROMYCIN. [Concomitant]
     Active Substance: ERYTHROMYCIN
     Route: 065
  31. TUMS [Concomitant]
     Active Substance: CALCIUM CARBONATE
     Route: 065
  32. ALBUMIN [Concomitant]
     Active Substance: ALBUMIN HUMAN
     Route: 065
  33. HEPARIN [Concomitant]
     Active Substance: HEPARIN SODIUM
     Route: 065
  34. ASPIRIN. [Concomitant]
     Active Substance: ASPIRIN
     Route: 065
  35. SODIUM CHLORIDE. [Concomitant]
     Active Substance: SODIUM CHLORIDE
     Route: 065
  36. MULTIVITAMINS [Concomitant]
     Active Substance: VITAMINS
     Route: 065
  37. XANAX [Concomitant]
     Active Substance: ALPRAZOLAM
     Route: 065
  38. PRILOSEC [Suspect]
     Active Substance: OMEPRAZOLE MAGNESIUM
     Indication: GASTROOESOPHAGEAL REFLUX DISEASE
     Dosage: GENERIC20.0MG UNKNOWN
     Route: 048
     Dates: start: 2016
  39. PRILOSEC OTC [Suspect]
     Active Substance: OMEPRAZOLE MAGNESIUM
     Indication: GASTROOESOPHAGEAL REFLUX DISEASE
     Dosage: 20.0MG UNKNOWN
     Route: 048
     Dates: start: 20080324, end: 2015
  40. MIDAZOLAM HYDROCHLORIDE. [Concomitant]
     Active Substance: MIDAZOLAM HYDROCHLORIDE
     Route: 065
  41. PHENYLEPHRINE [Concomitant]
     Active Substance: PHENYLEPHRINE HYDROCHLORIDE
     Route: 065
  42. TAMSULOSIN [Concomitant]
     Active Substance: TAMSULOSIN
     Route: 065
  43. ALPRAZOLAM. [Concomitant]
     Active Substance: ALPRAZOLAM
     Route: 065
  44. FENTANYL. [Concomitant]
     Active Substance: FENTANYL
     Route: 065
  45. PROPOFOL. [Concomitant]
     Active Substance: PROPOFOL
     Route: 065
  46. KETAMINE [Concomitant]
     Active Substance: KETAMINE
     Route: 065
  47. GLYCOPYRROLATE. [Concomitant]
     Active Substance: GLYCOPYRROLATE
     Route: 065
  48. DILTIAZEM. [Concomitant]
     Active Substance: DILTIAZEM
     Route: 065
  49. PROMETHAZINE [Concomitant]
     Active Substance: PROMETHAZINE HYDROCHLORIDE
     Route: 065
  50. METOPROLOL. [Concomitant]
     Active Substance: METOPROLOL
     Route: 065
  51. CEFDINIR. [Concomitant]
     Active Substance: CEFDINIR
     Route: 065
  52. PRILOSEC [Suspect]
     Active Substance: OMEPRAZOLE MAGNESIUM
     Indication: GASTROOESOPHAGEAL REFLUX DISEASE
     Dosage: GENERIC20.0MG UNKNOWN
     Route: 048
     Dates: start: 20150211
  53. PANTOPRAZOLE [Suspect]
     Active Substance: PANTOPRAZOLE
     Indication: GASTROOESOPHAGEAL REFLUX DISEASE
     Dosage: GENERIC40.0MG UNKNOWN
     Route: 065
     Dates: start: 20140827
  54. MOTRIN [Concomitant]
     Active Substance: IBUPROFEN
     Route: 065
  55. SENNOSIDES. [Concomitant]
     Active Substance: SENNOSIDES
     Route: 065
  56. ZOLPIDEM [Concomitant]
     Active Substance: ZOLPIDEM TARTRATE
     Route: 065
  57. TRIAMCINOLONE ACETONIDE. [Concomitant]
     Active Substance: TRIAMCINOLONE ACETONIDE
     Route: 065
  58. BACLOFEN. [Concomitant]
     Active Substance: BACLOFEN
     Route: 065

REACTIONS (1)
  - Adenocarcinoma gastric [Not Recovered/Not Resolved]
